FAERS Safety Report 6295228-2 (Version None)
Quarter: 2009Q3

REPORT INFORMATION
  Report Type: 
  Country: None (occurrence: None)
  Receive Date: 20090730
  Receipt Date: 20090720
  Transmission Date: 20100115
  Serious: Yes (Other)
  Sender: FDA-Public Use
  Company Number: 336644

PATIENT
  Sex: Female

DRUGS (1)
  1. ISOPRENALINE HCL [Suspect]
     Dosage: .2 MG/ML, INTRAVENOUS
     Route: 042
     Dates: start: 20090625, end: 20090625

REACTIONS (6)
  - CAESAREAN SECTION [None]
  - DRUG EXPOSURE DURING PREGNANCY [None]
  - ENDOTRACHEAL INTUBATION COMPLICATION [None]
  - LUNG DISORDER [None]
  - SINUS TACHYCARDIA [None]
  - WRONG DRUG ADMINISTERED [None]
